FAERS Safety Report 9593301 (Version 2)
Quarter: 2013Q4

REPORT INFORMATION
  Report Type: Spontaneous
  Country: BE (occurrence: BE)
  Receive Date: 20131004
  Receipt Date: 20131024
  Transmission Date: 20140711
  Serious: Yes (Hospitalization, Other)
  Sender: FDA-Public Use
  Company Number: PHHY2013BE108812

PATIENT
  Age: 23 Year
  Sex: Female
  Weight: 55 kg

DRUGS (1)
  1. CIPROFLOXACIN SANDOZ [Suspect]
     Indication: RESPIRATORY TRACT INFLAMMATION
     Dosage: 1 OT, ONCE/SINGLE
     Dates: start: 201306, end: 201306

REACTIONS (9)
  - Restlessness [Recovered/Resolved]
  - Epilepsy [Recovered/Resolved]
  - Pruritus [Recovered/Resolved]
  - Confusional state [Recovered/Resolved]
  - Abdominal pain [Recovered/Resolved]
  - Sleep disorder [Recovered/Resolved]
  - Hepatic function abnormal [Recovering/Resolving]
  - Renal impairment [Recovering/Resolving]
  - Muscle tightness [Recovered/Resolved]
